FAERS Safety Report 18947836 (Version 2)
Quarter: 2021Q2

REPORT INFORMATION
  Report Type: Spontaneous
  Country: US (occurrence: US)
  Receive Date: 20210227
  Receipt Date: 20210409
  Transmission Date: 20210717
  Serious: Yes (Death, Life-Threatening, Hospitalization, Other)
  Sender: FDA-Public Use
  Company Number: US-CIPLA LTD.-2021US01379

PATIENT

DRUGS (1)
  1. AMLODIPINE [Suspect]
     Active Substance: AMLODIPINE BESYLATE
     Dosage: UNK (INGESTION OF ?HALF A BOTTLE? OF AMLODIPINE)
     Route: 048

REACTIONS (5)
  - Toxicity to various agents [Fatal]
  - Intentional overdose [Fatal]
  - Circulatory collapse [Fatal]
  - Respiratory failure [Fatal]
  - Cardiac failure [Fatal]
